FAERS Safety Report 12758849 (Version 1)
Quarter: 2016Q3

REPORT INFORMATION
  Report Type: Spontaneous
  Country: US (occurrence: US)
  Receive Date: 20160919
  Receipt Date: 20160919
  Transmission Date: 20161109
  Serious: Yes (Other)
  Sender: FDA-Public Use
  Company Number: US-SAGENTPRD-2016-US-000026

PATIENT
  Age: 36 Year
  Sex: Male
  Weight: 82.1 kg

DRUGS (9)
  1. ATRACURIUM BESYLATE INJECTION, USP [Suspect]
     Active Substance: ATRACURIUM BESYLATE
     Dosage: TITRATED
     Route: 042
     Dates: start: 20160908, end: 20160908
  2. MIDAZOLAM [Concomitant]
     Active Substance: MIDAZOLAM\MIDAZOLAM HYDROCHLORIDE
  3. CHLORHEXIDINE [Concomitant]
     Active Substance: CHLORHEXIDINE
  4. ATRACURIUM BESYLATE INJECTION, USP [Suspect]
     Active Substance: ATRACURIUM BESYLATE
     Dosage: TITRATED
     Route: 042
     Dates: start: 20160908, end: 20160908
  5. FENTANYL. [Concomitant]
     Active Substance: FENTANYL
  6. PROPOFOL. [Concomitant]
     Active Substance: PROPOFOL
  7. PIPERACILLIN/TAZOBACTAM [Concomitant]
     Active Substance: PIPERACILLIN SODIUM\TAZOBACTAM SODIUM
  8. NORMAL SALINE [Concomitant]
     Active Substance: SODIUM CHLORIDE
  9. VANCOMYCIN [Concomitant]
     Active Substance: VANCOMYCIN

REACTIONS (1)
  - Drug ineffective [Unknown]

NARRATIVE: CASE EVENT DATE: 20160908
